FAERS Safety Report 23674149 (Version 1)
Quarter: 2024Q1

REPORT INFORMATION
  Report Type: Spontaneous
  Country: US (occurrence: US)
  Receive Date: 20240326
  Receipt Date: 20240326
  Transmission Date: 20240410
  Serious: No
  Sender: FDA-Public Use
  Company Number: US-Prasco Laboratories-PRAS20240800

PATIENT
  Age: 61 Year
  Sex: Female

DRUGS (1)
  1. ESTRADIOL [Suspect]
     Active Substance: ESTRADIOL
     Indication: Vulvovaginal dryness
     Dosage: SIZE OF A BLUEBERRY (SMALLER THAN 2 GRAMS), ONCE DAILY FOR 2 WEEKS THEN REDUCE TO ONCE EVERY 3 DAYS
     Route: 067
     Dates: start: 20240315, end: 20240318

REACTIONS (2)
  - Back pain [Not Recovered/Not Resolved]
  - Off label use [None]

NARRATIVE: CASE EVENT DATE: 20240315
